FAERS Safety Report 4930014-4 (Version None)
Quarter: 2006Q1

REPORT INFORMATION
  Report Type: 
  Country: None (occurrence: None)
  Receive Date: 20060302
  Receipt Date: 20060220
  Transmission Date: 20060701
  Serious: Yes (Hospitalization)
  Sender: FDA-Public Use
  Company Number: PHBS2006JP02672

PATIENT
  Age: 25 Year
  Sex: Male

DRUGS (2)
  1. FASTIC [Suspect]
     Indication: DIABETES MELLITUS INSULIN-DEPENDENT
     Dosage: 270 MG/DAY
     Route: 048
     Dates: start: 20040914, end: 20041107
  2. MAGNESIUM OXIDE [Concomitant]
     Indication: CONSTIPATION
     Dosage: 3 G, UNK
     Dates: start: 20040914, end: 20041113

REACTIONS (4)
  - DIABETES MELLITUS [None]
  - DIABETES MELLITUS INSULIN-DEPENDENT [None]
  - GLYCOSYLATED HAEMOGLOBIN INCREASED [None]
  - INSULIN C-PEPTIDE DECREASED [None]
